FAERS Safety Report 6563483-7 (Version None)
Quarter: 2010Q1

REPORT INFORMATION
  Report Type: 
  Country: None (occurrence: None)
  Receive Date: 20100130
  Receipt Date: 20091216
  Transmission Date: 20100710
  Serious: No
  Sender: FDA-Public Use
  Company Number: US-ABBOTT-09P-163-0614526-00

PATIENT
  Sex: Female
  Weight: 61.29 kg

DRUGS (2)
  1. HUMIRA [Suspect]
     Indication: RHEUMATOID ARTHRITIS
     Dates: start: 20090806, end: 20091001
  2. METHOTREXATE [Concomitant]
     Indication: DRUG USE FOR UNKNOWN INDICATION
     Dates: start: 20091015

REACTIONS (5)
  - ABDOMINAL DISCOMFORT [None]
  - DIARRHOEA [None]
  - FAECAL INCONTINENCE [None]
  - HYPERTENSION [None]
  - VISION BLURRED [None]
